FAERS Safety Report 5296896-4 (Version None)
Quarter: 2007Q2

REPORT INFORMATION
  Report Type: 
  Country: None (occurrence: None)
  Receive Date: 20070413
  Receipt Date: 20070404
  Transmission Date: 20071010
  Serious: Yes (Other)
  Sender: FDA-Public Use
  Company Number: FR-PFIZER INC-2007028930

PATIENT
  Age: 85 Year
  Sex: Male
  Weight: 77 kg

DRUGS (5)
  1. ESTRACYT [Suspect]
     Indication: PROSTATE CANCER
     Dosage: TEXT:4 DF-FREQ:EVERY DAY
     Route: 048
  2. MONO-TILDIEM [Concomitant]
     Indication: CARDIAC DISORDER
  3. PREVISCAN [Concomitant]
     Indication: CARDIAC DISORDER
  4. SERMION [Concomitant]
     Indication: CARDIAC DISORDER
  5. VASTAREL [Concomitant]
     Indication: CARDIAC DISORDER

REACTIONS (4)
  - GYNAECOMASTIA [None]
  - OEDEMA [None]
  - OEDEMA GENITAL [None]
  - WEIGHT INCREASED [None]
